FAERS Safety Report 6170649-7 (Version None)
Quarter: 2009Q2

REPORT INFORMATION
  Report Type: 
  Country: None (occurrence: None)
  Receive Date: 20090428
  Receipt Date: 20090422
  Transmission Date: 20091009
  Serious: Yes (Hospitalization, Other)
  Sender: FDA-Public Use
  Company Number: US-ELI_LILLY_AND_COMPANY-US200902007211

PATIENT
  Sex: Female

DRUGS (1)
  1. FORTEO [Suspect]
     Indication: OSTEOPOROSIS

REACTIONS (5)
  - ARTERIAL THROMBOSIS LIMB [None]
  - MULTIMORBIDITY [None]
  - OSTEOMALACIA [None]
  - SPINAL FUSION SURGERY [None]
  - TREATMENT NONCOMPLIANCE [None]
